FAERS Safety Report 15969895 (Version 1)
Quarter: 2019Q1

REPORT INFORMATION
  Report Type: Report from Study
  Country: US (occurrence: US)
  Receive Date: 20190215
  Receipt Date: 20190215
  Transmission Date: 20190418
  Serious: No
  Sender: FDA-Public Use
  Company Number: US-AMAG PHARMACEUTICALS, INC.-AMAG201800755

PATIENT

DRUGS (3)
  1. PROMETRIUM [Concomitant]
     Active Substance: PROGESTERONE
     Indication: PREMATURE LABOUR
     Dosage: 200 MG, QHS
     Route: 065
     Dates: start: 20180118
  2. MAKENA [Suspect]
     Active Substance: HYDROXYPROGESTERONE CAPROATE
     Indication: PREMATURE LABOUR
     Dosage: 250 MG/ML, WEEKLY
     Route: 030
     Dates: start: 20180201
  3. PROCARDIA [Concomitant]
     Active Substance: NIFEDIPINE
     Indication: PREMATURE LABOUR
     Dosage: 10 MG, Q6H
     Route: 065
     Dates: start: 20180222

REACTIONS (2)
  - Sluggishness [Not Recovered/Not Resolved]
  - Injection site pruritus [Unknown]

NARRATIVE: CASE EVENT DATE: 2018
